FAERS Safety Report 20832273 (Version 1)
Quarter: 2022Q2

REPORT INFORMATION
  Report Type: 
  Country: None (occurrence: None)
  Receive Date: 20220516
  Receipt Date: 20220516
  Transmission Date: 20220721
  Serious: No
  Sender: FDA-Public Use
  Company Number: US-ROCHE-1023095

PATIENT
  Weight: 82.6 kg

DRUGS (6)
  1. BEVACIZUMAB [Suspect]
     Active Substance: BEVACIZUMAB
     Dosage: LAST DOSE OF STUDY DRUG ADMINISTERED ON 11/NOV/2011
     Dates: start: 20110902
  2. CARBOPLATIN [Suspect]
     Active Substance: CARBOPLATIN
     Dosage: 6AUC
     Dates: start: 20110902
  3. PACLITAXEL [Suspect]
     Active Substance: PACLITAXEL
     Dosage: CYCLE 4 DELAYED 1 WEEK AND TAXOL WAS DOSE REDUCED TO 70 MG/M2 ON
     Dates: start: 20110902
  4. PACLITAXEL [Suspect]
     Active Substance: PACLITAXEL
     Dosage: DOSE REDUCED TO 70 MG/M2 DUE TO PERIPHERAL NEUROPATHY
     Dates: start: 20111104
  5. CLONAZEPAM [Suspect]
     Active Substance: CLONAZEPAM
  6. MIRTAZAPINE [Suspect]
     Active Substance: MIRTAZAPINE

REACTIONS (1)
  - Gastric haemorrhage [None]

NARRATIVE: CASE EVENT DATE: 20111205
